FAERS Safety Report 8031700-2 (Version None)
Quarter: 2012Q1

REPORT INFORMATION
  Report Type: 
  Country: None (occurrence: None)
  Receive Date: 20120109
  Receipt Date: 20120105
  Transmission Date: 20120608
  Serious: Yes (Hospitalization, Other)
  Sender: FDA-Public Use
  Company Number: US-ABBOTT-11P-163-0887124-00

PATIENT
  Sex: Male
  Weight: 83.99 kg

DRUGS (12)
  1. URSODIOL [Concomitant]
     Indication: LIVER DISORDER
  2. FOLIC ACID [Concomitant]
     Indication: RHEUMATOID ARTHRITIS
  3. HYDROCODONE [Concomitant]
     Indication: RHEUMATOID ARTHRITIS
     Dosage: 7.5/325
  4. VITAMIN D [Concomitant]
     Indication: VITAMIN SUPPLEMENTATION
  5. HUMIRA [Suspect]
     Indication: RHEUMATOID ARTHRITIS
     Route: 058
     Dates: start: 20111125
  6. PREDNISONE TAB [Concomitant]
     Indication: RHEUMATOID ARTHRITIS
  7. TOPROL-XL [Concomitant]
     Indication: HYPERTENSION
  8. TRAMADOL HCL [Concomitant]
     Indication: PAIN
  9. CALCIUM ACETATE [Concomitant]
     Indication: MINERAL SUPPLEMENTATION
  10. POTASSIUM CHLORIDE [Concomitant]
     Indication: MUSCLE SPASMS
  11. THYROID TAB [Concomitant]
     Indication: HYPOTHYROIDISM
  12. MULTIPLE VITAMINS [Concomitant]
     Indication: VITAMIN SUPPLEMENTATION

REACTIONS (3)
  - MYOCARDIAL INFARCTION [None]
  - OESOPHAGEAL HAEMORRHAGE [None]
  - CHEST PAIN [None]
